FAERS Safety Report 9103783 (Version 1)
Quarter: 2013Q1

REPORT INFORMATION
  Report Type: Spontaneous
  Country: IE (occurrence: IE)
  Receive Date: 20130219
  Receipt Date: 20130219
  Transmission Date: 20140127
  Serious: Yes (Other)
  Sender: FDA-Public Use
  Company Number: IE-TEVA-386138ISR

PATIENT
  Age: 67 Year
  Sex: Female

DRUGS (8)
  1. AZILECT [Suspect]
     Indication: PARKINSON^S DISEASE
     Dosage: 1 MILLIGRAM DAILY;
  2. STALEVO [Concomitant]
     Indication: PARKINSON^S DISEASE
     Dosage: 600 MILLIGRAM DAILY;
  3. METHOTREXATE [Concomitant]
  4. METHOTREXATE [Concomitant]
     Dosage: 3.5714 MILLIGRAM DAILY;
  5. FOLIC ACID [Concomitant]
  6. ARCOXIA 90 MG [Concomitant]
     Dosage: 90 MILLIGRAM DAILY;
  7. SOLPADOL [Concomitant]
  8. AMANTADINE [Concomitant]
     Indication: PARKINSON^S DISEASE
     Dosage: 200 MILLIGRAM DAILY;

REACTIONS (2)
  - Parkinsonism [Recovered/Resolved]
  - Rheumatoid vasculitis [Not Recovered/Not Resolved]
